FAERS Safety Report 4423693-1 (Version None)
Quarter: 2004Q3

REPORT INFORMATION
  Report Type: 
  Country: None (occurrence: None)
  Receive Date: 20040714
  Receipt Date: 20040503
  Transmission Date: 20050211
  Serious: Yes (Other)
  Sender: FDA-Public Use
  Company Number: HQWYE742406MAY04

PATIENT
  Age: 60 Year
  Sex: Female

DRUGS (1)
  1. ALAVERT [Suspect]
     Indication: HYPERSENSITIVITY
     Dosage: 1 TABLET, ONCE; ORAL
     Route: 048
     Dates: start: 20040428, end: 20040428

REACTIONS (1)
  - INSOMNIA [None]
